FAERS Safety Report 6724512-0 (Version None)
Quarter: 2010Q2

REPORT INFORMATION
  Report Type: 
  Country: None (occurrence: None)
  Receive Date: 20100513
  Receipt Date: 20100504
  Transmission Date: 20101027
  Serious: Yes (Other)
  Sender: FDA-Public Use
  Company Number: VE-PFIZER INC-2010056031

PATIENT
  Age: 22 Year
  Sex: Female

DRUGS (1)
  1. MISOPROSTOL [Suspect]
     Indication: ABORTION
     Dosage: UNK
     Route: 048
     Dates: start: 20080901, end: 20080901

REACTIONS (2)
  - ABORTION INDUCED [None]
  - OFF LABEL USE [None]
